FAERS Safety Report 22351912 (Version 1)
Quarter: 2023Q2

REPORT INFORMATION
  Report Type: Spontaneous
  Country: US (occurrence: None)
  Receive Date: 20230522
  Receipt Date: 20230522
  Transmission Date: 20230722
  Serious: Yes (Hospitalization, Disabling, Other)
  Sender: FDA-Public Use
  Company Number: None

PATIENT
  Sex: Male
  Weight: 108.86 kg

DRUGS (3)
  1. SEROQUEL [Suspect]
     Active Substance: QUETIAPINE FUMARATE
  2. VITAMIN B12 [Concomitant]
     Active Substance: CYANOCOBALAMIN
  3. VITAMIN C [Concomitant]
     Active Substance: ASCORBIC ACID

REACTIONS (18)
  - Loss of consciousness [None]
  - Dizziness [None]
  - Muscle spasms [None]
  - Joint lock [None]
  - Muscle spasms [None]
  - Nerve compression [None]
  - Feeling abnormal [None]
  - Palpitations [None]
  - Amnesia [None]
  - Speech disorder [None]
  - Abdominal discomfort [None]
  - Nervousness [None]
  - Dyspnoea [None]
  - Flatulence [None]
  - Thinking abnormal [None]
  - Aphasia [None]
  - Oxygen saturation decreased [None]
  - Fatigue [None]
